FAERS Safety Report 19248971 (Version 1)
Quarter: 2021Q2

REPORT INFORMATION
  Report Type: Report from Study
  Country: DE (occurrence: DE)
  Receive Date: 20210512
  Receipt Date: 20210512
  Transmission Date: 20210717
  Serious: Yes (Hospitalization, Other)
  Sender: FDA-Public Use
  Company Number: DE-BRISTOL-MYERS SQUIBB COMPANY-BMS-2019-107239

PATIENT
  Age: 69 Year
  Sex: Male

DRUGS (7)
  1. IPILIMUMAB [Suspect]
     Active Substance: IPILIMUMAB
     Indication: MALIGNANT MELANOMA
     Dosage: 195 MILLIGRAM, Q3WK
     Route: 042
     Dates: start: 20191015, end: 20191127
  2. CLINDAMYCINUM [Concomitant]
     Active Substance: CLINDAMYCIN
     Indication: PRODUCT USED FOR UNKNOWN INDICATION
     Dosage: 1800 MILLIGRAM
     Route: 042
     Dates: start: 20191017, end: 20191027
  3. CLINDAMYCINUM [Concomitant]
     Active Substance: CLINDAMYCIN
     Dosage: 600 MILLIGRAM
     Route: 048
     Dates: start: 20191028
  4. PREDNICARBATE. [Concomitant]
     Active Substance: PREDNICARBATE
     Indication: PRODUCT USED FOR UNKNOWN INDICATION
     Dosage: 20 ABSENT
     Route: 003
     Dates: start: 20200113, end: 20200212
  5. NIVOLUMAB [Suspect]
     Active Substance: NIVOLUMAB
     Indication: MALIGNANT MELANOMA
     Dosage: 65 MILLIGRAM, Q3WK
     Route: 042
     Dates: start: 20191015, end: 20191127
  6. NIVOLUMAB [Suspect]
     Active Substance: NIVOLUMAB
     Dosage: UNK
     Route: 042
     Dates: start: 20200818
  7. IPILIMUMAB [Suspect]
     Active Substance: IPILIMUMAB
     Dosage: UNK
     Route: 042
     Dates: start: 20200818

REACTIONS (6)
  - Wound infection [Recovered/Resolved]
  - Rash erythematous [Recovered/Resolved]
  - Malignant neoplasm progression [Unknown]
  - Soft tissue infection [Not Recovered/Not Resolved]
  - Dry skin [Recovered/Resolved]
  - Papule [Recovered/Resolved]

NARRATIVE: CASE EVENT DATE: 20191016
